FAERS Safety Report 17798529 (Version 1)
Quarter: 2020Q2

REPORT INFORMATION
  Report Type: Spontaneous
  Country: US (occurrence: US)
  Receive Date: 20200518
  Receipt Date: 20200518
  Transmission Date: 20200714
  Serious: No
  Sender: FDA-Public Use
  Company Number: US-ASTRAZENECA-2019SF75150

PATIENT
  Age: 268 Day
  Sex: Male
  Weight: 6.6 kg

DRUGS (3)
  1. INFANT-TODDLER MULTIVIT-IRON [Concomitant]
  2. CULTURELLE BABY GROW-THRIVE [Concomitant]
  3. SYNAGIS [Suspect]
     Active Substance: PALIVIZUMAB
     Indication: PREMATURE BABY
     Dosage: 50MG/0.5ML VL LIQUID, MONTHLY
     Route: 030
     Dates: start: 20191108

REACTIONS (3)
  - Bronchitis [Unknown]
  - Pyrexia [Unknown]
  - Rhinorrhoea [Unknown]

NARRATIVE: CASE EVENT DATE: 20191202
